FAERS Safety Report 14713339 (Version 1)
Quarter: 2018Q2

REPORT INFORMATION
  Report Type: Spontaneous
  Country: CM (occurrence: CM)
  Receive Date: 20180404
  Receipt Date: 20180404
  Transmission Date: 20180711
  Serious: Yes (Hospitalization, Other)
  Sender: FDA-Public Use
  Company Number: CM-STRIDES ARCOLAB LIMITED-2018SP002455

PATIENT

DRUGS (9)
  1. PARACETAMOL [Concomitant]
     Active Substance: ACETAMINOPHEN
     Indication: ANALGESIC THERAPY
     Dosage: UNK
     Route: 065
  2. QUININE [Concomitant]
     Active Substance: QUININE
     Indication: PRODUCT USED FOR UNKNOWN INDICATION
     Dosage: UNK
     Route: 065
  3. LAMIVUDINE. [Concomitant]
     Active Substance: LAMIVUDINE
     Indication: HIV INFECTION
     Dosage: 30 MG, UNKNOWN
     Route: 065
     Dates: start: 201303
  4. NEVIRAPINE. [Suspect]
     Active Substance: NEVIRAPINE
     Indication: HIV INFECTION
     Dosage: 100 MG, QD
     Route: 065
     Dates: start: 201303
  5. NEVIRAPINE. [Suspect]
     Active Substance: NEVIRAPINE
     Dosage: 100 MG, BID
     Route: 065
  6. ZIDOVUDINE. [Concomitant]
     Active Substance: ZIDOVUDINE
     Indication: HIV INFECTION
     Dosage: 60 MG, UNKNOWN
     Route: 065
     Dates: start: 201303
  7. PARACETAMOL [Concomitant]
     Active Substance: ACETAMINOPHEN
     Indication: PYREXIA
     Dosage: 500 MG, EVERY 8 HRS
     Route: 065
  8. ARTEMETHER + LUMEFANTRINE [Concomitant]
     Indication: PRODUCT USED FOR UNKNOWN INDICATION
     Dosage: UNK
     Route: 065
  9. COTRIMOXAZOLE [Concomitant]
     Active Substance: SULFAMETHOXAZOLE\TRIMETHOPRIM
     Indication: OPPORTUNISTIC INFECTION PROPHYLAXIS
     Dosage: 480 MG DAILY
     Route: 065

REACTIONS (17)
  - Rash pruritic [Recovered/Resolved]
  - Pyrexia [Recovered/Resolved]
  - Blindness [Not Recovered/Not Resolved]
  - Skin exfoliation [Recovered/Resolved]
  - Nikolsky^s sign [Recovered/Resolved]
  - Haemorrhage [Recovered/Resolved]
  - Somnolence [Recovered/Resolved]
  - Eye discharge [Recovered/Resolved]
  - Mouth ulceration [Recovered/Resolved]
  - Restlessness [Recovered/Resolved]
  - Conjunctival hyperaemia [Recovered/Resolved]
  - Symblepharon [Recovered/Resolved]
  - Malaise [Recovered/Resolved]
  - Iris adhesions [Recovered/Resolved]
  - Scab [Recovered/Resolved]
  - Toxic epidermal necrolysis [Recovered/Resolved]
  - Blister [Recovered/Resolved]
